FAERS Safety Report 5121782-X (Version None)
Quarter: 2006Q4

REPORT INFORMATION
  Report Type: 
  Country: None (occurrence: None)
  Receive Date: 20061003
  Receipt Date: 20060926
  Transmission Date: 20070319
  Serious: Yes (Other)
  Sender: FDA-Public Use
  Company Number: BR-2006-027129

PATIENT
  Age: 32 Year
  Sex: Female

DRUGS (1)
  1. YASMIN [Suspect]
     Indication: ORAL CONTRACEPTION
     Dosage: 1 TAB(S), ORAL
     Dates: start: 20040913

REACTIONS (4)
  - AMENORRHOEA [None]
  - FEELING HOT [None]
  - OVARIAN ATROPHY [None]
  - UTERINE ATROPHY [None]
